FAERS Safety Report 24041177 (Version 1)
Quarter: 2024Q3

REPORT INFORMATION
  Report Type: Spontaneous
  Country: SI (occurrence: SI)
  Receive Date: 20240702
  Receipt Date: 20240702
  Transmission Date: 20241017
  Serious: Yes (Hospitalization)
  Sender: PERRIGO
  Company Number: SI-MLMSERVICE-20240624-PI109519-00030-3

PATIENT
  Sex: Male

DRUGS (1)
  1. IBUPROFEN [Suspect]
     Active Substance: IBUPROFEN
     Indication: Arthropathy
     Dosage: PRN
     Route: 065

REACTIONS (1)
  - Hyponatraemia [Unknown]
